FAERS Safety Report 4488717-4 (Version None)
Quarter: 2004Q4

REPORT INFORMATION
  Report Type: 
  Country: None (occurrence: None)
  Receive Date: 20041025
  Receipt Date: 20041012
  Transmission Date: 20050328
  Serious: Yes (Other)
  Sender: FDA-Public Use
  Company Number: DE-2004-032698

PATIENT
  Age: 33 Year
  Sex: Female
  Weight: 70 kg

DRUGS (2)
  1. MIRENA [Suspect]
     Indication: CONTRACEPTION
     Dosage: 20 UG/DAY, CONT, INTRA-UTERINE
     Route: 015
     Dates: start: 19970101
  2. ANTI-HISTAMINE TAB [Concomitant]

REACTIONS (3)
  - ANTI-HBS ANTIBODY POSITIVE [None]
  - ANTIBODY TEST ABNORMAL [None]
  - HEPATOCELLULAR DAMAGE [None]
